FAERS Safety Report 16992726 (Version 1)
Quarter: 2019Q4

REPORT INFORMATION
  Report Type: Spontaneous
  Country: US (occurrence: US)
  Receive Date: 20190923
  Receipt Date: 20190923
  Transmission Date: 20200122
  Serious: Yes (Other)
  Sender: FDA-Public Use
  Company Number: None

PATIENT

DRUGS (2)
  1. BEVACIZUMAB. [Suspect]
     Active Substance: BEVACIZUMAB
     Indication: VISUAL IMPAIRMENT
  2. BEVACIZUMAB. [Suspect]
     Active Substance: BEVACIZUMAB
     Indication: VISION BLURRED
     Dates: start: 20190904, end: 20190904

REACTIONS (5)
  - Vision blurred [None]
  - Foreign body in eye [None]
  - Product contamination [None]
  - Visual impairment [None]
  - Syringe issue [None]
